FAERS Safety Report 17982659 (Version 1)
Quarter: 2020Q3

REPORT INFORMATION
  Report Type: Spontaneous
  Country: US (occurrence: US)
  Receive Date: 20200703
  Receipt Date: 20200703
  Transmission Date: 20201103
  Serious: Yes (Other)
  Sender: FDA-Public Use
  Company Number: None

PATIENT
  Age: 70 Year
  Sex: Female
  Weight: 78.3 kg

DRUGS (9)
  1. ACETAMINOPHEN. [Concomitant]
     Active Substance: ACETAMINOPHEN
  2. TURMERIC [Concomitant]
     Active Substance: HERBALS\TURMERIC
  3. K?TAB [Concomitant]
     Active Substance: POTASSIUM CHLORIDE
  4. LETROZOLE. [Concomitant]
     Active Substance: LETROZOLE
  5. DILTIAZEM. [Concomitant]
     Active Substance: DILTIAZEM
  6. IRBESARTAN. [Concomitant]
     Active Substance: IRBESARTAN
  7. MULTIVITAMIN [Concomitant]
     Active Substance: VITAMINS
  8. IBRANCE [Suspect]
     Active Substance: PALBOCICLIB
     Indication: BREAST CANCER FEMALE
     Route: 048
     Dates: start: 20200615
  9. LEVOTHYROXINE. [Concomitant]
     Active Substance: LEVOTHYROXINE

REACTIONS (1)
  - White blood cell count decreased [None]

NARRATIVE: CASE EVENT DATE: 20200703
